FAERS Safety Report 8912703 (Version 1)
Quarter: 2012Q4

REPORT INFORMATION
  Report Type: 
  Country: ES (occurrence: ES)
  Receive Date: 20121116
  Receipt Date: 20121116
  Transmission Date: 20130627
  Serious: Yes (Hospitalization)
  Sender: FDA-Public Use
  Company Number: JP-ASTRAZENECA-2012SE86505

PATIENT
  Age: 81 Year
  Sex: Female

DRUGS (3)
  1. CANDESARTAN CILEXETIL\HYDROCHLOROTHIAZIDE [Suspect]
     Indication: HYPERTENSION
     Dosage: 16 mg/12.5 mg DAILY
     Route: 048
     Dates: start: 200602, end: 20120102
  2. CITALOPRAM [Interacting]
     Indication: DEPRESSION
     Dosage: DAILY
     Route: 048
     Dates: start: 20111201, end: 20120102
  3. TRAZODONE [Interacting]
     Indication: DEPRESSION
     Route: 048
     Dates: start: 20111201, end: 20120102

REACTIONS (3)
  - Drug interaction [Unknown]
  - Hyponatraemia [Recovered/Resolved]
  - Hypokalaemia [Recovered/Resolved]
